FAERS Safety Report 6278195-7 (Version None)
Quarter: 2009Q3

REPORT INFORMATION
  Report Type: 
  Country: None (occurrence: None)
  Receive Date: 20090722
  Receipt Date: 20090709
  Transmission Date: 20100115
  Serious: Yes (Life-Threatening)
  Sender: FDA-Public Use
  Company Number: JP-PFIZER INC-2009185618

PATIENT
  Age: 67 Year

DRUGS (8)
  1. SUNITINIB MALATE [Suspect]
     Indication: GASTROINTESTINAL STROMAL TUMOUR
     Dosage: 50 MG, 1X/DAY, TDD 50 MG
     Route: 048
     Dates: start: 20090225, end: 20090313
  2. LASIX [Concomitant]
     Route: 042
     Dates: end: 20090313
  3. MEDICON [Concomitant]
     Route: 048
     Dates: end: 20090313
  4. MUCOSOLVAN [Concomitant]
     Route: 048
     Dates: end: 20090313
  5. NORVASC [Concomitant]
     Route: 048
     Dates: end: 20090313
  6. HARNAL [Concomitant]
     Route: 048
     Dates: end: 20090313
  7. ROHYPNOL [Concomitant]
     Route: 048
     Dates: end: 20090313
  8. FLOMOX [Concomitant]
     Route: 048
     Dates: start: 20090301

REACTIONS (2)
  - INFECTION [None]
  - PNEUMONIA [None]
